FAERS Safety Report 16134343 (Version 1)
Quarter: 2019Q1

REPORT INFORMATION
  Report Type: Spontaneous
  Country: BR (occurrence: BR)
  Receive Date: 20190329
  Receipt Date: 20190329
  Transmission Date: 20190418
  Serious: Yes (Other)
  Sender: FDA-Public Use
  Company Number: BR-CELGENEUS-BRA-20190101704

PATIENT
  Sex: Male

DRUGS (4)
  1. PONDERA [Concomitant]
     Active Substance: PAROXETINE HYDROCHLORIDE
     Indication: CEREBROVASCULAR ACCIDENT
     Dosage: 20 MILLIGRAM
     Route: 048
     Dates: start: 2014
  2. VIDAZA [Suspect]
     Active Substance: AZACITIDINE
     Route: 065
     Dates: start: 2017
  3. ENALAPRIL [Concomitant]
     Active Substance: ENALAPRIL
     Indication: HYPERTENSION
     Dosage: 40 MILLIGRAM
     Route: 048
     Dates: start: 2015
  4. VIDAZA [Suspect]
     Active Substance: AZACITIDINE
     Indication: MYELODYSPLASTIC SYNDROME
     Route: 065
     Dates: start: 20160816

REACTIONS (7)
  - Hypoacusis [Unknown]
  - Injection site nodule [Recovered/Resolved]
  - Application site erythema [Unknown]
  - Injection site discolouration [Recovering/Resolving]
  - Pain in extremity [Recovered/Resolved]
  - Injection site pain [Recovering/Resolving]
  - Injection site reaction [Recovering/Resolving]
